FAERS Safety Report 6283845-5 (Version None)
Quarter: 2009Q3

REPORT INFORMATION
  Report Type: 
  Country: None (occurrence: None)
  Receive Date: 20090723
  Receipt Date: 20090723
  Transmission Date: 20100115
  Serious: Yes (Life-Threatening)
  Sender: FDA-Public Use
  Company Number: None

PATIENT
  Age: 60 Year
  Sex: Male

DRUGS (1)
  1. BOVINE THROMBIN [Suspect]
     Indication: HAEMORRHAGE
     Dosage: TOP, 2 DOSES
     Route: 061

REACTIONS (4)
  - ANTIBODY TEST POSITIVE [None]
  - COAGULOPATHY [None]
  - HAEMOTHORAX [None]
  - LUNG DISORDER [None]
